FAERS Safety Report 4485415-8 (Version None)
Quarter: 2004Q4

REPORT INFORMATION
  Report Type: 
  Country: None (occurrence: None)
  Receive Date: 20041026
  Receipt Date: 20041019
  Transmission Date: 20050328
  Serious: Yes (Other)
  Sender: FDA-Public Use
  Company Number: CA-ABBOTT-04P-028-0278295-00

PATIENT

DRUGS (1)
  1. RATIO-VALPROIC  SYRUP [Suspect]
     Indication: DRUG USE FOR UNKNOWN INDICATION
     Dosage: 50 MG/ML

REACTIONS (1)
  - CONVULSION [None]
